FAERS Safety Report 5070058-8 (Version None)
Quarter: 2006Q3

REPORT INFORMATION
  Report Type: 
  Country: None (occurrence: None)
  Receive Date: 20060731
  Receipt Date: 20060718
  Transmission Date: 20061208
  Serious: Yes (Death, Hospitalization)
  Sender: FDA-Public Use
  Company Number: 2006089515

PATIENT
  Age: 78 Year
  Sex: Male

DRUGS (7)
  1. ALDACTONE [Suspect]
     Indication: DRUG USE FOR UNKNOWN INDICATION
     Dosage: 25 MG (FREQUENCY: DAILY),ORAL
     Route: 048
     Dates: start: 20060427, end: 20060616
  2. PERINDOPRIL ERBUMINE [Suspect]
     Indication: DRUG USE FOR UNKNOWN INDICATION
     Dosage: 1DF, ORAL
     Route: 048
     Dates: end: 20060616
  3. FUROSEMIDE [Suspect]
     Indication: DRUG USE FOR UNKNOWN INDICATION
     Dosage: 80 MG (80 MG, FREQUENCY: DAILY), ORAL
     Route: 048
     Dates: end: 20060616
  4. ALLOPURINOL [Concomitant]
  5. NICORANDIL [Concomitant]
  6. ATORVASTATIN CALCIUM [Concomitant]
  7. NITROGLYCERIN [Concomitant]

REACTIONS (15)
  - CARDIAC ARREST [None]
  - CARDIOVASCULAR DISORDER [None]
  - ELECTROCARDIOGRAM QRS COMPLEX PROLONGED [None]
  - ELECTROCARDIOGRAM T WAVE ABNORMAL [None]
  - GENERAL PHYSICAL HEALTH DETERIORATION [None]
  - HAEMODIALYSIS [None]
  - HYPERKALAEMIA [None]
  - LUNG DISORDER [None]
  - MALAISE [None]
  - MYDRIASIS [None]
  - RENAL ATROPHY [None]
  - RENAL HYPERTROPHY [None]
  - SHOCK [None]
  - VENTRICULAR HYPOKINESIA [None]
  - VENTRICULAR TACHYCARDIA [None]
